FAERS Safety Report 8230658-0 (Version None)
Quarter: 2012Q1

REPORT INFORMATION
  Report Type: 
  Country: None (occurrence: None)
  Receive Date: 20120323
  Receipt Date: 20120320
  Transmission Date: 20120608
  Serious: Yes (Death)
  Sender: FDA-Public Use
  Company Number: US-ASTELLAS-2012US002942

PATIENT
  Sex: Male

DRUGS (2)
  1. PROGRAF [Suspect]
     Indication: HEART TRANSPLANT
     Dosage: 0.5 MG, UID/QD
     Route: 048
     Dates: start: 20020719
  2. PROGRAF [Suspect]
     Dosage: 2 MG EVERY MORNING, 3 MG EVERY EVENING
     Route: 048

REACTIONS (1)
  - DEATH [None]
